FAERS Safety Report 10279928 (Version 1)
Quarter: 2014Q3

REPORT INFORMATION
  Report Type: Spontaneous
  Country: US (occurrence: US)
  Receive Date: 20140707
  Receipt Date: 20140707
  Transmission Date: 20150326
  Serious: No
  Sender: FDA-Public Use
  Company Number: US-JNJFOC-20140616856

PATIENT
  Age: 55 Year
  Sex: Female
  Weight: 68.04 kg

DRUGS (1)
  1. DURAGESIC [Suspect]
     Active Substance: FENTANYL
     Indication: INTERVERTEBRAL DISC PROTRUSION
     Route: 062
     Dates: start: 201404

REACTIONS (4)
  - Product quality issue [Unknown]
  - Drug dose omission [Unknown]
  - Product physical issue [Unknown]
  - Drug administration error [Unknown]

NARRATIVE: CASE EVENT DATE: 201406
